FAERS Safety Report 15780662 (Version 1)
Quarter: 2019Q1

REPORT INFORMATION
  Report Type: Report from Study
  Country: CN (occurrence: CN)
  Receive Date: 20190102
  Receipt Date: 20190102
  Transmission Date: 20190417
  Serious: Yes (Other)
  Sender: FDA-Public Use
  Company Number: CN-ROCHE-2234295

PATIENT

DRUGS (2)
  1. CAPECITABINE. [Suspect]
     Active Substance: CAPECITABINE
     Indication: COLORECTAL CANCER
     Route: 048
  2. OXALIPLATIN. [Suspect]
     Active Substance: OXALIPLATIN
     Indication: COLORECTAL CANCER
     Dosage: INFUSION 2 HOURS ON FIRST DAY
     Route: 042

REACTIONS (11)
  - Renal injury [Unknown]
  - Neuritis [Unknown]
  - Vomiting [Unknown]
  - White blood cell count decreased [Unknown]
  - Diarrhoea [Unknown]
  - Palmar-plantar erythrodysaesthesia syndrome [Unknown]
  - Nausea [Unknown]
  - Alopecia [Unknown]
  - Platelet count decreased [Unknown]
  - Liver injury [Unknown]
  - Anaemia [Unknown]
